FAERS Safety Report 9271435 (Version 32)
Quarter: 2019Q2

REPORT INFORMATION
  Report Type: Report from Study
  Country: CA (occurrence: CA)
  Receive Date: 20130506
  Receipt Date: 20190607
  Transmission Date: 20190711
  Serious: Yes (Hospitalization, Other)
  Sender: FDA-Public Use
  Company Number: PHHY2013CA029044

PATIENT
  Age: 57 Year
  Sex: Male

DRUGS (14)
  1. SANDOSTATIN LAR DEPOT [Suspect]
     Active Substance: OCTREOTIDE ACETATE
     Dosage: 60 TO 80 MG, UNK
     Route: 030
     Dates: start: 20180919
  2. SANDOSTATIN LAR DEPOT [Suspect]
     Active Substance: OCTREOTIDE ACETATE
     Dosage: 50 MG, QMO (ONCE MONTH)
     Route: 030
     Dates: start: 20170609, end: 20170707
  3. SANDOSTATIN LAR DEPOT [Suspect]
     Active Substance: OCTREOTIDE ACETATE
     Dosage: 40 MG, QMO (EVERY 4 WEEKS)
     Route: 065
  4. SANDOSTATIN LAR DEPOT [Suspect]
     Active Substance: OCTREOTIDE ACETATE
     Dosage: 30 MG, QMO (ONCE A MONTH)
     Route: 030
     Dates: end: 20170512
  5. SANDOSTATIN LAR DEPOT [Suspect]
     Active Substance: OCTREOTIDE ACETATE
     Dosage: 60 MG, EVERY 3 WEEKS
     Route: 030
     Dates: start: 20170727
  6. SANDOSTATIN LAR DEPOT [Suspect]
     Active Substance: OCTREOTIDE ACETATE
     Indication: NEUROENDOCRINE TUMOUR
     Dosage: 80 MG, Q4W
     Route: 030
     Dates: start: 20130501
  7. SANDOSTATIN LAR DEPOT [Suspect]
     Active Substance: OCTREOTIDE ACETATE
     Dosage: UNK, Q4W
     Route: 030
  8. PANTOLOC [Concomitant]
     Active Substance: PANTOPRAZOLE SODIUM
     Dosage: 40 MG, QD FOR 3 MONTHS
     Route: 065
  9. SANDOSTATIN [Suspect]
     Active Substance: OCTREOTIDE ACETATE
     Indication: NEUROENDOCRINE TUMOUR
     Dosage: 200 UG, TID
     Route: 058
     Dates: start: 20130319, end: 2013
  10. SANDOSTATIN LAR DEPOT [Suspect]
     Active Substance: OCTREOTIDE ACETATE
     Dosage: 60 MG, QMO
     Route: 030
     Dates: start: 20130501
  11. SANDOSTATIN LAR DEPOT [Suspect]
     Active Substance: OCTREOTIDE ACETATE
     Dosage: 30 MG, QMO
     Route: 030
  12. SOLU-CORTEF [Suspect]
     Active Substance: HYDROCORTISONE SODIUM SUCCINATE
     Indication: DRUG HYPERSENSITIVITY
     Dosage: UNK
     Route: 065
     Dates: start: 2013
  13. SANDOSTATIN LAR DEPOT [Suspect]
     Active Substance: OCTREOTIDE ACETATE
     Dosage: 50 MG, QMO (EVERY 4 WEEKS)
     Route: 030
  14. PANTOLOC [Concomitant]
     Active Substance: PANTOPRAZOLE SODIUM
     Indication: PRODUCT USED FOR UNKNOWN INDICATION
     Dosage: 30 MG, QD
     Route: 065

REACTIONS (54)
  - Post-traumatic stress disorder [Unknown]
  - Disorientation [Unknown]
  - Myalgia [Unknown]
  - Photopsia [Unknown]
  - Decreased appetite [Unknown]
  - Dizziness [Unknown]
  - Cholelithiasis [Unknown]
  - Discomfort [Unknown]
  - Oropharyngeal pain [Unknown]
  - Depressed mood [Unknown]
  - Abdominal pain [Unknown]
  - Inappropriate schedule of product administration [Unknown]
  - Renal pain [Unknown]
  - Malaise [Unknown]
  - Drug hypersensitivity [Unknown]
  - Diarrhoea [Unknown]
  - Metastases to liver [Unknown]
  - Agitation [Unknown]
  - Abdominal pain upper [Unknown]
  - Anxiety [Unknown]
  - Intestinal obstruction [Unknown]
  - Traumatic shock [Unknown]
  - Burning sensation [Unknown]
  - Cough [Unknown]
  - Speech disorder [Unknown]
  - Flushing [Unknown]
  - Asthenia [Unknown]
  - Nausea [Unknown]
  - Dyskinesia [Unknown]
  - Logorrhoea [Unknown]
  - Vomiting [Unknown]
  - Pain [Unknown]
  - Injection site pain [Unknown]
  - Blood urine present [Unknown]
  - Blood pressure increased [Unknown]
  - Skin reaction [Unknown]
  - Suicidal ideation [Unknown]
  - Nasopharyngitis [Unknown]
  - Blood pressure systolic decreased [Unknown]
  - Weight decreased [Unknown]
  - Nephrolithiasis [Unknown]
  - Back pain [Unknown]
  - Insomnia [Unknown]
  - Confusional state [Unknown]
  - Psychomotor hyperactivity [Unknown]
  - Affective disorder [Unknown]
  - Dyspnoea [Unknown]
  - Stress [Unknown]
  - Fatigue [Unknown]
  - Rhinorrhoea [Unknown]
  - Nasal congestion [Unknown]
  - Mood altered [Unknown]
  - Tachycardia [Unknown]
  - Amnesia [Unknown]

NARRATIVE: CASE EVENT DATE: 20130409
